FAERS Safety Report 25179224 (Version 2)
Quarter: 2025Q4

REPORT INFORMATION
  Report Type: Report from Study
  Country: KR (occurrence: KR)
  Receive Date: 20250409
  Receipt Date: 20251028
  Transmission Date: 20260117
  Serious: Yes (Hospitalization)
  Sender: ROCHE
  Company Number: KR-ROCHE-10000252255

PATIENT
  Age: 59 Year
  Sex: Male
  Weight: 59.4 kg

DRUGS (12)
  1. BEVACIZUMAB [Suspect]
     Active Substance: BEVACIZUMAB
     Indication: Head and neck cancer
     Route: 042
     Dates: start: 20250228, end: 20250228
  2. BEVACIZUMAB [Suspect]
     Active Substance: BEVACIZUMAB
     Route: 042
     Dates: start: 20250319, end: 20250319
  3. ERLOTINIB [Suspect]
     Active Substance: ERLOTINIB
     Indication: Head and neck cancer
     Route: 048
     Dates: start: 20250228, end: 20250319
  4. ERLOTINIB [Suspect]
     Active Substance: ERLOTINIB
     Route: 048
     Dates: start: 20250319, end: 20250408
  5. dulackhan-easy [Concomitant]
     Dates: start: 20250206, end: 20250411
  6. MOSAPRIDE CITRATE [Concomitant]
     Active Substance: MOSAPRIDE CITRATE
     Dates: start: 20250206, end: 20250411
  7. godex [Concomitant]
     Dates: start: 20250206, end: 20250411
  8. K-CAB [Concomitant]
     Dates: start: 20250206, end: 20250411
  9. MUCOSTA SR [Concomitant]
     Dates: start: 20250206, end: 20250411
  10. NORZYME [Concomitant]
     Dates: start: 20250206, end: 20250411
  11. ULTRACET [Concomitant]
     Active Substance: ACETAMINOPHEN\TRAMADOL HYDROCHLORIDE
     Dates: start: 20250206, end: 20250411
  12. URSODIOL [Concomitant]
     Active Substance: URSODIOL
     Dates: start: 20250206, end: 20250411

REACTIONS (1)
  - Abdominal pain upper [Recovered/Resolved]

NARRATIVE: CASE EVENT DATE: 20250315
